FAERS Safety Report 4642985-4 (Version None)
Quarter: 2005Q2

REPORT INFORMATION
  Report Type: 
  Country: None (occurrence: None)
  Receive Date: 20050421
  Receipt Date: 20050217
  Transmission Date: 20051028
  Serious: Yes (Disabling)
  Sender: FDA-Public Use
  Company Number: 2005026400

PATIENT
  Age: 74 Year
  Sex: Male
  Weight: 82 kg

DRUGS (6)
  1. CABERGOLINE [Suspect]
     Indication: PARKINSON'S DISEASE
     Dosage: 1 MG (1 MG, 1 IN 1 D), ORAL
     Route: 048
     Dates: start: 20030101, end: 20041111
  2. SELEGELINE HYDROCHLORIDE                (SELEGELINE HYDROCHLORIDE) [Concomitant]
  3. SIMVASTATIN [Concomitant]
  4. RAMIPRIL [Concomitant]
  5. ASPIRIN [Concomitant]
  6. MODURETIC 5-50 [Concomitant]

REACTIONS (2)
  - PLEURAL FIBROSIS [None]
  - RESTRICTIVE PULMONARY DISEASE [None]
